FAERS Safety Report 15506686 (Version 1)
Quarter: 2018Q4

REPORT INFORMATION
  Report Type: Spontaneous
  Country: US (occurrence: US)
  Receive Date: 20181016
  Receipt Date: 20181016
  Transmission Date: 20190205
  Serious: Yes (Hospitalization, Other)
  Sender: FDA-Public Use
  Company Number: US-MACLEODS PHARMACEUTICALS US LTD-MAC2018017425

PATIENT

DRUGS (3)
  1. TRIAMCINOLONE ACETONIDE. [Suspect]
     Active Substance: TRIAMCINOLONE ACETONIDE
     Indication: NERVE BLOCK
     Dosage: 1 MILLILITER,INJECTION,40MG/ML
     Route: 008
  2. LIDOCAINE. [Concomitant]
     Active Substance: LIDOCAINE
     Indication: NERVE BLOCK
     Dosage: 4 MILLILITER
     Route: 008
  3. AUGMENTINE [Suspect]
     Active Substance: AMOXICILLIN\CLAVULANATE POTASSIUM
     Indication: SINUSITIS
     Dosage: UNK
     Route: 065

REACTIONS (1)
  - Erythema multiforme [Unknown]
